FAERS Safety Report 5513133-3 (Version None)
Quarter: 2007Q4

REPORT INFORMATION
  Report Type: 
  Country: None (occurrence: None)
  Receive Date: 20071112
  Receipt Date: 20071106
  Transmission Date: 20080405
  Serious: Yes (Hospitalization, Other)
  Sender: FDA-Public Use
  Company Number: US-BRISTOL-MYERS SQUIBB COMPANY-13971502

PATIENT
  Age: 63 Year
  Sex: Male
  Weight: 71 kg

DRUGS (1)
  1. IXEMPRA [Suspect]
     Indication: PROSTATE CANCER
     Dosage: 20MG/M2 ON DAY 1,8,15. CYC 28DAYS
     Route: 042
     Dates: start: 20070430, end: 20070430

REACTIONS (4)
  - ATAXIA [None]
  - DEHYDRATION [None]
  - HAEMOGLOBIN DECREASED [None]
  - HYPONATRAEMIA [None]
